FAERS Safety Report 19452458 (Version 2)
Quarter: 2021Q3

REPORT INFORMATION
  Report Type: Spontaneous
  Country: US (occurrence: US)
  Receive Date: 20210623
  Receipt Date: 20210923
  Transmission Date: 20211014
  Serious: Yes (Hospitalization, Other)
  Sender: FDA-Public Use
  Company Number: US-DRREDDYS-SPO/USA/21/0136626

PATIENT
  Age: 27 Month
  Sex: Female

DRUGS (8)
  1. IMMUNOGLOBULIN [Concomitant]
     Route: 042
  2. PREDNISOLONE. [Suspect]
     Active Substance: PREDNISOLONE
     Indication: MULTISYSTEM INFLAMMATORY SYNDROME IN CHILDREN
  3. DEXAMETHASONE SODIUM PHOSPHATE INJECTION, 4 MG/ML [Suspect]
     Active Substance: DEXAMETHASONE SODIUM PHOSPHATE
     Indication: ASTHMA
  4. SALBUTAMOL [Concomitant]
     Active Substance: ALBUTEROL
     Indication: ASTHMA
  5. DEXAMETHASONE SODIUM PHOSPHATE INJECTION, 4 MG/ML [Suspect]
     Active Substance: DEXAMETHASONE SODIUM PHOSPHATE
     Indication: UPPER RESPIRATORY TRACT INFECTION
  6. IMMUNOGLOBULIN [Concomitant]
     Indication: MULTISYSTEM INFLAMMATORY SYNDROME IN CHILDREN
     Route: 042
  7. ACETYLSALICYLIC ACID [Concomitant]
     Active Substance: ASPIRIN
     Indication: MULTISYSTEM INFLAMMATORY SYNDROME IN CHILDREN
  8. ENOXAPARIN [Concomitant]
     Active Substance: ENOXAPARIN
     Indication: MULTISYSTEM INFLAMMATORY SYNDROME IN CHILDREN

REACTIONS (2)
  - Sinus bradycardia [Recovered/Resolved]
  - Hypertension [Recovered/Resolved]
